FAERS Safety Report 6987216-5 (Version None)
Quarter: 2010Q3

REPORT INFORMATION
  Report Type: 
  Country: None (occurrence: None)
  Receive Date: 20100916
  Receipt Date: 20100907
  Transmission Date: 20110219
  Serious: Yes (Hospitalization)
  Sender: FDA-Public Use
  Company Number: DE-PFIZER INC-2010104472

PATIENT
  Age: 36 Year
  Sex: Male

DRUGS (1)
  1. SUTENT [Suspect]
     Indication: METASTATIC RENAL CELL CARCINOMA
     Dosage: 50 MG, UNK
     Route: 048
     Dates: start: 20100827

REACTIONS (4)
  - ANAPHYLACTIC REACTION [None]
  - LIP SWELLING [None]
  - LOCAL SWELLING [None]
  - OEDEMA MUCOSAL [None]
